FAERS Safety Report 17711581 (Version 5)
Quarter: 2023Q4

REPORT INFORMATION
  Report Type: Spontaneous
  Country: US (occurrence: US)
  Receive Date: 20200427
  Receipt Date: 20231019
  Transmission Date: 20240109
  Serious: Yes (Hospitalization, Other)
  Sender: FDA-Public Use
  Company Number: US-VERTEX PHARMACEUTICALS-2020-009489

PATIENT
  Sex: Male
  Weight: 49 kg

DRUGS (1)
  1. TRIKAFTA [Suspect]
     Active Substance: ELEXACAFTOR\IVACAFTOR\TEZACAFTOR
     Indication: Cystic fibrosis
     Dosage: 2 ORANGE TABS AM AND 1 BLUE TAB PM
     Route: 048
     Dates: start: 20200410

REACTIONS (5)
  - Cholecystitis [Recovered/Resolved]
  - Oxygen saturation decreased [Recovered/Resolved]
  - Cough [Recovered/Resolved]
  - Productive cough [Recovering/Resolving]
  - Back pain [Recovered/Resolved]

NARRATIVE: CASE EVENT DATE: 20200101
